FAERS Safety Report 5917987-8 (Version None)
Quarter: 2008Q4

REPORT INFORMATION
  Report Type: 
  Country: None (occurrence: None)
  Receive Date: 20081014
  Receipt Date: 20081003
  Transmission Date: 20090506
  Serious: Yes (Hospitalization)
  Sender: FDA-Public Use
  Company Number: US-ELI_LILLY_AND_COMPANY-US200809002681

PATIENT
  Sex: Male
  Weight: 116.34 kg

DRUGS (10)
  1. BYETTA [Suspect]
     Indication: TYPE 2 DIABETES MELLITUS
     Dosage: 5 UG, 2/D
     Route: 058
     Dates: start: 20080815, end: 20080902
  2. SIMVASTATIN [Concomitant]
     Dosage: 20 MG, UNK
     Route: 048
  3. GLYBURIDE AND METFORMIN HCL [Concomitant]
     Dosage: UNK, 2/D
  4. OMEPRAZOLE [Concomitant]
     Dosage: 20 MG, DAILY (1/D)
  5. LORATADINE [Concomitant]
     Dosage: 10 MG, DAILY (1/D)
  6. ATENOLOL [Concomitant]
     Dosage: 50 MG, DAILY (1/D)
  7. AMLODIPINE MALEATE/ BENAZEPRIL HYDROCHLORIDE [Concomitant]
     Dosage: UNK, DAILY (1/D)
  8. LEVOTHYROXINE SODIUM [Concomitant]
     Dosage: 100 UG, DAILY (1/D)
  9. CITRULLINE [Concomitant]
     Dosage: 100 MG, DAILY (1/D)
  10. ACTOS [Concomitant]
     Dosage: 30 MG, DAILY (1/D)

REACTIONS (2)
  - CHOLELITHIASIS [None]
  - PANCREATITIS [None]
